FAERS Safety Report 8343405-9 (Version None)
Quarter: 2012Q2

REPORT INFORMATION
  Report Type: 
  Country: None (occurrence: None)
  Receive Date: 20120508
  Receipt Date: 20100408
  Transmission Date: 20120825
  Serious: No
  Sender: FDA-Public Use
  Company Number: US-TEVA-2010002055

PATIENT
  Age: 63 Year
  Sex: Female

DRUGS (10)
  1. LEVOTHYROXINE SODIUM [Concomitant]
  2. METAMUCIL-2 [Concomitant]
  3. MULTI-VITAMIN [Concomitant]
  4. TRAZODONE HCL [Suspect]
     Indication: DEPRESSION
  5. ASPIRIN [Concomitant]
  6. METOPROLOL TARTRATE [Concomitant]
  7. TREANDA [Suspect]
     Indication: NON-HODGKIN'S LYMPHOMA
     Route: 042
  8. CYCLOBENZAPRINE HCL [Suspect]
     Route: 048
  9. AMITRIPTYLINE HCL [Suspect]
  10. PRAVASTATIN [Concomitant]

REACTIONS (1)
  - AGEUSIA [None]
